FAERS Safety Report 26000623 (Version 1)
Quarter: 2025Q4

REPORT INFORMATION
  Report Type: Spontaneous
  Country: TW (occurrence: TW)
  Receive Date: 20251105
  Receipt Date: 20251105
  Transmission Date: 20260117
  Serious: Yes (Other)
  Sender: TERSERA THERAPEUTICS
  Company Number: TW-AstraZeneca-CH-00983067A

PATIENT

DRUGS (2)
  1. GOSERELIN [Suspect]
     Active Substance: GOSERELIN
     Indication: Product used for unknown indication
     Dosage: UNK
     Route: 065
  2. ZOLADEX [Suspect]
     Active Substance: GOSERELIN ACETATE
     Indication: Product used for unknown indication
     Dosage: UNK
     Route: 065

REACTIONS (1)
  - Malignant neoplasm progression [Unknown]
